FAERS Safety Report 7948251-3 (Version None)
Quarter: 2011Q4

REPORT INFORMATION
  Report Type: 
  Country: None (occurrence: None)
  Receive Date: 20111130
  Receipt Date: 20111117
  Transmission Date: 20120403
  Serious: No
  Sender: FDA-Public Use
  Company Number: US-CELGENEUS-163-21880-11051172

PATIENT
  Sex: Male

DRUGS (5)
  1. ZOMETA [Suspect]
  2. DECADRON [Concomitant]
     Route: 065
     Dates: start: 20110203
  3. PERCOCET [Concomitant]
     Route: 065
  4. REVLIMID [Suspect]
     Indication: MULTIPLE MYELOMA
     Dosage: 25 MILLIGRAM
     Route: 048
     Dates: start: 20110101
  5. REVLIMID [Suspect]
     Dosage: 25 MILLIGRAM
     Route: 048
     Dates: start: 20110501, end: 20110601

REACTIONS (2)
  - COUGH [None]
  - RHINORRHOEA [None]
